FAERS Safety Report 7973386-9 (Version None)
Quarter: 2011Q4

REPORT INFORMATION
  Report Type: 
  Country: None (occurrence: None)
  Receive Date: 20111213
  Receipt Date: 20110825
  Transmission Date: 20120403
  Serious: No
  Sender: FDA-Public Use
  Company Number: US-AMGEN-USASP2011031016

PATIENT
  Age: 59 Year
  Sex: Female
  Weight: 90.249 kg

DRUGS (16)
  1. LASIX [Concomitant]
     Dosage: 80 MG, UNK
     Dates: start: 20110217
  2. LEVEMIR [Concomitant]
     Dosage: UNK
     Dates: start: 20100826
  3. TUMS                               /00193601/ [Concomitant]
     Dosage: UNK
     Dates: start: 20100826
  4. LEVOTHYROXINE SODIUM [Concomitant]
     Dosage: 100 MUG, QD
     Dates: start: 20110617
  5. METOPROLOL TARTRATE [Concomitant]
     Dosage: 200 MG, QD
     Dates: start: 20100507
  6. RENVELA [Concomitant]
     Dosage: 800 MG, UNK
     Dates: start: 20100826
  7. VITAMIN C                          /00008001/ [Concomitant]
     Dosage: 250 MG, QD
     Dates: start: 20110429
  8. NORVASC [Concomitant]
     Dosage: 10 MG, QD
     Dates: start: 20100507
  9. TIMOLOL MALEATE [Concomitant]
     Dosage: UNK
     Dates: start: 20091207
  10. ARANESP [Suspect]
     Dosage: UNK
  11. SULFAT FERROSO [Concomitant]
     Dosage: 325 MG, Q8H
     Dates: start: 20110623
  12. ASPIRIN [Concomitant]
     Dosage: UNK UNK, QD
     Dates: start: 20091207
  13. HYDRALAZINE HCL [Concomitant]
     Dosage: 50 MG, Q8H
     Dates: start: 20100507
  14. LIPITOR [Concomitant]
     Dosage: 80 MG, QD
     Dates: start: 20091207
  15. EPOGEN [Suspect]
     Indication: RENAL FAILURE CHRONIC
     Dosage: UNK UNK, QWK
     Route: 058
     Dates: start: 20100601
  16. PLAVIX [Concomitant]
     Dosage: 75 MG, QD
     Dates: start: 20091207

REACTIONS (3)
  - CHILLS [None]
  - FEELING COLD [None]
  - ANAEMIA [None]
